FAERS Safety Report 4642822-8 (Version None)
Quarter: 2005Q2

REPORT INFORMATION
  Report Type: 
  Country: None (occurrence: None)
  Receive Date: 20050421
  Receipt Date: 20050408
  Transmission Date: 20051028
  Serious: Yes (Death)
  Sender: FDA-Public Use
  Company Number: 430003M05GBR

PATIENT
  Age: 67 Year
  Sex: Male

DRUGS (4)
  1. NOVANTRONE [Suspect]
     Dosage: 5 MG/M2, 1 IN 1 DAYS
     Dates: end: 19980601
  2. CYCLOPHOSPHAMIDE [Suspect]
     Dosage: 250 MG/MG, 1 IN 3 DAYS
     Dates: end: 19980601
  3. FLUDARABINE PHOSPHATE [Suspect]
     Dosage: 25 MG/M2, 1 IN 3 DAYS, INTRAVENOUS
     Route: 042
     Dates: end: 19971101
  4. FLUDARABINE PHOSPHATE [Suspect]
     Dosage: 25 MG/M2, 1 IN 3 DAYS, INTRAVENOUS
     Route: 042
     Dates: end: 19980601

REACTIONS (1)
  - CHRONIC LYMPHOCYTIC LEUKAEMIA TRANSFORMATION [None]
